FAERS Safety Report 8232003-3 (Version None)
Quarter: 2012Q1

REPORT INFORMATION
  Report Type: 
  Country: None (occurrence: None)
  Receive Date: 20120323
  Receipt Date: 20120316
  Transmission Date: 20120608
  Serious: Yes (Other)
  Sender: FDA-Public Use
  Company Number: US-JNJFOC-20120111875

PATIENT
  Sex: Female
  Weight: 123.38 kg

DRUGS (3)
  1. STELARA [Suspect]
     Indication: PSORIASIS
     Route: 058
  2. ASPIRIN [Concomitant]
     Indication: PROPHYLAXIS
     Route: 065
     Dates: start: 20100401
  3. STELARA [Suspect]
     Route: 058
     Dates: start: 20100407

REACTIONS (2)
  - PUSTULAR PSORIASIS [None]
  - TREATMENT NONCOMPLIANCE [None]
